FAERS Safety Report 20510151 (Version 1)
Quarter: 2022Q1

REPORT INFORMATION
  Report Type: Spontaneous
  Country: US (occurrence: US)
  Receive Date: 20220224
  Receipt Date: 20220224
  Transmission Date: 20220423
  Serious: Yes (Other)
  Sender: FDA-Public Use
  Company Number: US-AUROBINDO-AUR-APL-2021-051459

PATIENT
  Age: 78 Year
  Sex: Male

DRUGS (13)
  1. ACETAMINOPHEN [Suspect]
     Active Substance: ACETAMINOPHEN
     Indication: Penile pain
     Dosage: 650 MILLIGRAM
     Route: 065
  2. ACETAMINOPHEN [Suspect]
     Active Substance: ACETAMINOPHEN
     Indication: Breakthrough pain
  3. GABAPENTIN [Suspect]
     Active Substance: GABAPENTIN
     Indication: Penile pain
     Dosage: 100 MILLIGRAM
     Route: 065
  4. GABAPENTIN [Suspect]
     Active Substance: GABAPENTIN
     Indication: Breakthrough pain
  5. HYDROMORPHONE [Suspect]
     Active Substance: HYDROMORPHONE
     Indication: Penile pain
     Dosage: 4 MILLIGRAM, FOUR TIMES/DAY
     Route: 065
  6. TRAMADOL [Suspect]
     Active Substance: TRAMADOL
     Indication: Penile pain
     Dosage: 50 MILLIGRAM
     Route: 065
  7. TRAMADOL [Suspect]
     Active Substance: TRAMADOL
     Indication: Breakthrough pain
  8. FENTANYL [Suspect]
     Active Substance: FENTANYL
     Indication: Penile pain
     Dosage: 50 MICROGRAM, EVERY FOUR HOUR (AS NEEDED)
     Route: 065
  9. FENTANYL [Suspect]
     Active Substance: FENTANYL
     Indication: Breakthrough pain
  10. MORPHINE [Suspect]
     Active Substance: MORPHINE
     Indication: Penile pain
     Dosage: 4 MILLIGRAM
     Route: 065
  11. MORPHINE [Suspect]
     Active Substance: MORPHINE
     Indication: Breakthrough pain
  12. PHENOL [Suspect]
     Active Substance: PHENOL
     Indication: Penile pain
     Dosage: UNK
     Route: 065
  13. LIDOCAINE [Concomitant]
     Active Substance: LIDOCAINE
     Indication: Penile pain
     Dosage: UNK
     Route: 065

REACTIONS (1)
  - Drug ineffective [Unknown]
